FAERS Safety Report 9111146 (Version 1)
Quarter: 2013Q1

REPORT INFORMATION
  Report Type: Spontaneous
  Country: US (occurrence: US)
  Receive Date: 20130219
  Receipt Date: 20130219
  Transmission Date: 20140127
  Serious: No
  Sender: FDA-Public Use
  Company Number: US-BRISTOL-MYERS SQUIBB COMPANY-16601015

PATIENT
  Age: 42 Year
  Sex: Female

DRUGS (1)
  1. ORENCIA [Suspect]
     Indication: RHEUMATOID ARTHRITIS
     Dosage: DATE OF LAST INFUSION: 15MAY2012,08OCT12.DOSE:3 VIALS
     Route: 042
     Dates: start: 20120430

REACTIONS (2)
  - Pyrexia [Recovered/Resolved]
  - Drug ineffective [Unknown]
